FAERS Safety Report 7137734-4 (Version None)
Quarter: 2010Q4

REPORT INFORMATION
  Report Type: 
  Country: None (occurrence: None)
  Receive Date: 20101206
  Receipt Date: 20101123
  Transmission Date: 20110411
  Serious: Yes (Other)
  Sender: FDA-Public Use
  Company Number: PHEH2009US17339

PATIENT
  Sex: Female

DRUGS (7)
  1. ZOMETA [Suspect]
     Indication: BREAST CANCER
  2. AMOXICILLIN [Concomitant]
     Dosage: 500 MG, QD
     Route: 048
  3. GEMZAR [Concomitant]
     Dosage: 1560 MG, QW2
  4. CHLORHEXIDINE GLUCONATE [Concomitant]
     Dosage: 473 ML, BID
     Route: 004
  5. HYDROMORPHONE HCL [Concomitant]
     Dosage: 2 MG, PRN
  6. AROMASIN [Concomitant]
  7. VISTARIL [Concomitant]

REACTIONS (49)
  - ABSCESS ORAL [None]
  - ACETABULUM FRACTURE [None]
  - ADRENAL ADENOMA [None]
  - ANHEDONIA [None]
  - ANXIETY [None]
  - AORTIC ANEURYSM [None]
  - AORTIC VALVE INCOMPETENCE [None]
  - ARTERIOSCLEROSIS [None]
  - ARTHRALGIA [None]
  - ARTHRITIS [None]
  - ASTHENIA [None]
  - BACK PAIN [None]
  - BALANCE DISORDER [None]
  - BONE DISORDER [None]
  - BONE LESION [None]
  - CHOLELITHIASIS [None]
  - CORONARY ARTERY DISEASE [None]
  - DEFORMITY [None]
  - DEPRESSION [None]
  - DERMATITIS CONTACT [None]
  - DISCOMFORT [None]
  - DYSPEPSIA [None]
  - EMOTIONAL DISTRESS [None]
  - FEELING ABNORMAL [None]
  - GAIT DISTURBANCE [None]
  - GASTROOESOPHAGEAL REFLUX DISEASE [None]
  - HIATUS HERNIA [None]
  - IMPAIRED SELF-CARE [None]
  - INGROWING NAIL [None]
  - INTERVERTEBRAL DISC DEGENERATION [None]
  - LIGAMENT SPRAIN [None]
  - LUMBAR RADICULOPATHY [None]
  - LYMPHADENOPATHY [None]
  - MASTICATION DISORDER [None]
  - METASTASES TO BONE [None]
  - MITRAL VALVE CALCIFICATION [None]
  - MITRAL VALVE INCOMPETENCE [None]
  - MYALGIA [None]
  - MYOSITIS [None]
  - ONYCHOMYCOSIS [None]
  - OSTEOARTHRITIS [None]
  - OSTEONECROSIS OF JAW [None]
  - OVERDOSE [None]
  - PAIN [None]
  - PECTUS EXCAVATUM [None]
  - SCOLIOSIS [None]
  - SINUSITIS [None]
  - SPLEEN DISORDER [None]
  - TOOTH EXTRACTION [None]
